FAERS Safety Report 8474441-X (Version None)
Quarter: 2012Q2

REPORT INFORMATION
  Report Type: 
  Country: None (occurrence: None)
  Receive Date: 20120628
  Receipt Date: 20120622
  Transmission Date: 20120825
  Serious: Yes (Hospitalization, Other)
  Sender: FDA-Public Use
  Company Number: PHHY2012FR054267

PATIENT
  Sex: Female

DRUGS (15)
  1. CYCLOPHOSPHAMIDE [Suspect]
     Route: 042
     Dates: start: 20041203
  2. EPIRUBICIN HYDROCHLORIDE [Suspect]
     Dates: start: 20041202, end: 20050202
  3. NAVELBINE [Suspect]
     Dosage: 90 MG, UNK
     Route: 042
     Dates: start: 20070701, end: 20071101
  4. NAVOBAN [Suspect]
     Route: 048
     Dates: start: 20070701, end: 20071101
  5. FLUOROURACIL [Suspect]
     Dates: start: 20041203, end: 20050202
  6. ESTRACYT [Suspect]
     Dosage: 2 DF, TWICE DAILY
     Route: 048
     Dates: start: 20091203, end: 20110101
  7. FEMARA [Suspect]
     Dosage: 1 DF, DAILY
     Dates: start: 20050401, end: 20061101
  8. CYCLOPHOSPHAMIDE [Suspect]
     Dates: start: 20110201
  9. CYCLOPHOSPHAMIDE [Suspect]
     Dates: start: 20110202
  10. EXEMESTANE [Suspect]
     Dosage: 1 DF, DAILY
     Route: 048
     Dates: start: 20061101, end: 20070201
  11. DOXORUBICIN HCL [Suspect]
     Route: 042
     Dates: start: 20071127, end: 20080624
  12. ARIMIDEX [Suspect]
     Dosage: 1 DF, DAILY
     Route: 048
     Dates: start: 20080101, end: 20090201
  13. FASLODEX [Suspect]
     Route: 048
     Dates: start: 20070201, end: 20070501
  14. XELODA [Suspect]
     Route: 048
     Dates: start: 20070801, end: 20071101
  15. DOXORUBICIN HCL [Suspect]
     Dates: start: 20090219, end: 20091105

REACTIONS (6)
  - TONGUE NEOPLASM MALIGNANT STAGE UNSPECIFIED [None]
  - BRONCHIAL DISORDER [None]
  - LYMPHADENOPATHY [None]
  - TONGUE DISORDER [None]
  - GENERAL PHYSICAL HEALTH DETERIORATION [None]
  - METASTASES TO PLEURA [None]
